FAERS Safety Report 8454871 (Version 8)
Quarter: 2012Q4

REPORT INFORMATION
  Report Type: Report from Study
  Country: CA (occurrence: CA)
  Receive Date: 20120312
  Receipt Date: 20121105
  Transmission Date: 20130627
  Serious: Yes (Hospitalization, Other)
  Sender: FDA-Public Use
  Company Number: CA-ROCHE-1044787

PATIENT
  Age: 49 None
  Sex: Female
  Weight: 49.94 kg

DRUGS (8)
  1. TOCILIZUMAB [Suspect]
     Indication: RHEUMATOID ARTHRITIS
     Route: 042
     Dates: start: 20111118, end: 20120206
  2. TOCILIZUMAB [Suspect]
     Route: 042
     Dates: start: 20120416
  3. PREDNISONE [Concomitant]
  4. SYNTHROID [Concomitant]
  5. ARAVA [Concomitant]
  6. NAPROSYN [Concomitant]
  7. ZOPICLONE [Concomitant]
  8. NEXIUM [Concomitant]

REACTIONS (12)
  - Intraocular pressure increased [Unknown]
  - Blister [Recovering/Resolving]
  - Dizziness [Not Recovered/Not Resolved]
  - Urinary tract infection [Recovered/Resolved]
  - Influenza [Recovered/Resolved]
  - Nasopharyngitis [Not Recovered/Not Resolved]
  - Pericardial effusion [Unknown]
  - Hepatic enzyme increased [Unknown]
  - Haemoglobin decreased [Unknown]
  - Ulcer haemorrhage [Recovering/Resolving]
  - Fatigue [Not Recovered/Not Resolved]
  - Asthenia [Not Recovered/Not Resolved]
